FAERS Safety Report 16856772 (Version 5)
Quarter: 2020Q1

REPORT INFORMATION
  Report Type: Report from Study
  Country: None (occurrence: US)
  Receive Date: 20190926
  Receipt Date: 20200325
  Transmission Date: 20200409
  Serious: Yes (Hospitalization, Other)
  Sender: FDA-Public Use
  Company Number: US-ABBVIE-19K-163-2938726-00

PATIENT
  Age: 49 Year
  Sex: Male

DRUGS (2)
  1. HUMIRA [Suspect]
     Active Substance: ADALIMUMAB
     Indication: RHEUMATOID ARTHRITIS
     Dosage: CITRATE FREE
     Route: 058
     Dates: end: 2019
  2. HUMIRA [Suspect]
     Active Substance: ADALIMUMAB
     Indication: COLITIS ULCERATIVE
     Dosage: HUMIRA CITRATE FREE
     Route: 058
     Dates: end: 202001

REACTIONS (18)
  - Carpal tunnel syndrome [Unknown]
  - Pain [Not Recovered/Not Resolved]
  - Pain [Unknown]
  - Mobility decreased [Unknown]
  - Diabetes mellitus [Unknown]
  - Joint dislocation [Unknown]
  - Sciatica [Unknown]
  - Paranasal sinus discomfort [Unknown]
  - Hip arthroplasty [Unknown]
  - Pain [Recovered/Resolved]
  - Blood glucose abnormal [Unknown]
  - Joint stiffness [Unknown]
  - Therapeutic response shortened [Unknown]
  - Rheumatoid arthritis [Unknown]
  - Nasopharyngitis [Unknown]
  - Peripheral swelling [Unknown]
  - Adventitial cystic disease [Unknown]
  - Hip surgery [Recovered/Resolved]

NARRATIVE: CASE EVENT DATE: 2018
